FAERS Safety Report 7022533-4 (Version None)
Quarter: 2010Q3

REPORT INFORMATION
  Report Type: 
  Country: None (occurrence: None)
  Receive Date: 20100930
  Receipt Date: 20100924
  Transmission Date: 20110219
  Serious: Yes (Other)
  Sender: FDA-Public Use
  Company Number: JP-PFIZER INC-2010122533

PATIENT
  Weight: 44 kg

DRUGS (1)
  1. HALCION [Suspect]
     Route: 048

REACTIONS (1)
  - DELIRIUM [None]
